FAERS Safety Report 24309030 (Version 7)
Quarter: 2025Q1

REPORT INFORMATION
  Report Type: Report from Study
  Country: BR (occurrence: BR)
  Receive Date: 20240911
  Receipt Date: 20250103
  Transmission Date: 20250409
  Serious: Yes (Death, Hospitalization, Other)
  Sender: GILEAD
  Company Number: BR-GILEAD-2024-0682249

PATIENT
  Age: 22 Year
  Sex: Male
  Weight: 94 kg

DRUGS (4)
  1. AXICABTAGENE CILOLEUCEL [Suspect]
     Active Substance: AXICABTAGENE CILOLEUCEL
     Indication: Diffuse large B-cell lymphoma
     Route: 042
     Dates: start: 20240701, end: 20240701
  2. AXICABTAGENE CILOLEUCEL [Suspect]
     Active Substance: AXICABTAGENE CILOLEUCEL
     Indication: Non-Hodgkin^s lymphoma refractory
  3. OMEPRAZOLE [Concomitant]
     Active Substance: OMEPRAZOLE
  4. SUCRALFATE [Concomitant]
     Active Substance: SUCRALFATE

REACTIONS (16)
  - Shock haemorrhagic [Fatal]
  - Tuberculosis [Fatal]
  - Hodgkin^s disease [Fatal]
  - Duodenal ulcer [Fatal]
  - Ulcer [Unknown]
  - Platelet count decreased [Not Recovered/Not Resolved]
  - Hepatotoxicity [Unknown]
  - Confusional state [Not Recovered/Not Resolved]
  - Immune effector cell-associated neurotoxicity syndrome [Recovered/Resolved]
  - Cytokine release syndrome [Recovered/Resolved]
  - Decreased appetite [Unknown]
  - Malaise [Unknown]
  - Dysgraphia [Unknown]
  - Abdominal pain upper [Unknown]
  - Gastrooesophageal reflux disease [Unknown]
  - Flatulence [Unknown]

NARRATIVE: CASE EVENT DATE: 20240703
